FAERS Safety Report 7297735-2 (Version None)
Quarter: 2011Q1

REPORT INFORMATION
  Report Type: 
  Country: None (occurrence: None)
  Receive Date: 20110214
  Receipt Date: 20110214
  Transmission Date: 20110831
  Serious: Yes (Other)
  Sender: FDA-Public Use
  Company Number: None

PATIENT
  Age: 50 Year
  Sex: Female
  Weight: 119.296 kg

DRUGS (4)
  1. HCG NO LABEL NO LABEL [Suspect]
     Indication: WEIGHT CONTROL
     Dosage: PRE-MEASURED INJECTIONS DAILY
     Dates: start: 20101231, end: 20110107
  2. HCG NO LABEL NO LABEL [Suspect]
     Indication: OBESITY
     Dosage: PRE-MEASURED INJECTIONS DAILY
     Dates: start: 20101231, end: 20110107
  3. HCG NO LABEL NO LABEL [Suspect]
     Indication: WEIGHT CONTROL
     Dosage: PRE-MEASURED INJECTIONS DAILY
     Dates: start: 20110117, end: 20110122
  4. HCG NO LABEL NO LABEL [Suspect]
     Indication: OBESITY
     Dosage: PRE-MEASURED INJECTIONS DAILY
     Dates: start: 20110117, end: 20110122

REACTIONS (21)
  - WEIGHT INCREASED [None]
  - ERYTHEMA [None]
  - DIZZINESS [None]
  - HEPATIC STEATOSIS [None]
  - DIARRHOEA [None]
  - ABDOMINAL PAIN [None]
  - DRUG HYPERSENSITIVITY [None]
  - PRURITUS [None]
  - DEHYDRATION [None]
  - DEPRESSION [None]
  - FIBRIN D DIMER INCREASED [None]
  - RASH [None]
  - HEADACHE [None]
  - INFLUENZA [None]
  - BLISTER [None]
  - DYSPNOEA [None]
  - CHEST PAIN [None]
  - MUSCLE SPASMS [None]
  - HYPOTENSION [None]
  - DRUG INEFFECTIVE [None]
  - IMPAIRED WORK ABILITY [None]
